FAERS Safety Report 7153834-7 (Version None)
Quarter: 2010Q4

REPORT INFORMATION
  Report Type: 
  Country: None (occurrence: None)
  Receive Date: 20101213
  Receipt Date: 20100628
  Transmission Date: 20110411
  Serious: No
  Sender: FDA-Public Use
  Company Number: US-ABBOTT-10P-163-0655259-00

PATIENT
  Sex: Female
  Weight: 58.112 kg

DRUGS (8)
  1. MERIDIA [Suspect]
     Indication: WEIGHT INCREASED
     Route: 048
  2. MERIDIA [Suspect]
     Indication: BINGE EATING
  3. SYNTHROID [Suspect]
     Indication: HYPOTHYROIDISM
     Route: 048
  4. SYNTHROID [Suspect]
     Route: 048
  5. XANAX [Concomitant]
     Indication: SLEEP DISORDER THERAPY
  6. XALATAN [Concomitant]
     Indication: GLAUCOMA
  7. ASPIRIN [Concomitant]
     Indication: PRODUCT USED FOR UNKNOWN INDICATION
     Route: 048
  8. CRESTOR [Concomitant]
     Indication: BLOOD CHOLESTEROL INCREASED

REACTIONS (2)
  - ASTHENIA [None]
  - NERVOUSNESS [None]
